FAERS Safety Report 8562251-4 (Version None)
Quarter: 2012Q3

REPORT INFORMATION
  Report Type: 
  Country: None (occurrence: None)
  Receive Date: 20120802
  Receipt Date: 20120710
  Transmission Date: 20120928
  Serious: No
  Sender: FDA-Public Use
  Company Number: US-AMGEN-USASP2012042843

PATIENT
  Age: 67 Year
  Sex: Female

DRUGS (1)
  1. ENBREL [Suspect]
     Indication: RHEUMATOID ARTHRITIS
     Dosage: 50 MG, QWK
     Dates: start: 20120613, end: 20120620

REACTIONS (5)
  - INJECTION SITE PRURITUS [None]
  - PRURITUS GENERALISED [None]
  - LATEX ALLERGY [None]
  - INJECTION SITE RASH [None]
  - INJECTION SITE ERYTHEMA [None]
